FAERS Safety Report 6472361-3 (Version None)
Quarter: 2009Q4

REPORT INFORMATION
  Report Type: 
  Country: None (occurrence: None)
  Receive Date: 20091130
  Receipt Date: 20091110
  Transmission Date: 20100525
  Serious: Yes (Other)
  Sender: FDA-Public Use
  Company Number: ADE2008-0282

PATIENT
  Age: 55 Year
  Sex: Male

DRUGS (2)
  1. FLUOXETINE [Suspect]
     Indication: DEPRESSION
     Dates: start: 19950101
  2. FLUOXETINE [Suspect]
     Indication: DEPRESSION
     Dates: start: 20020101

REACTIONS (8)
  - ABDOMINAL DISTENSION [None]
  - CARCINOID TUMOUR OF THE SMALL BOWEL [None]
  - DIARRHOEA [None]
  - FLUSHING [None]
  - IRRITABLE BOWEL SYNDROME [None]
  - METASTASES TO LIVER [None]
  - METASTASES TO LYMPH NODES [None]
  - WEIGHT DECREASED [None]
